FAERS Safety Report 22206326 (Version 1)
Quarter: 2023Q2

REPORT INFORMATION
  Report Type: Report from Study
  Country: CA (occurrence: CA)
  Receive Date: 20230413
  Receipt Date: 20230413
  Transmission Date: 20230722
  Serious: Yes (Life-Threatening, Hospitalization, Other)
  Sender: FDA-Public Use
  Company Number: None

PATIENT
  Age: 60 Year
  Sex: Female

DRUGS (6)
  1. METHOTREXATE [Suspect]
     Active Substance: METHOTREXATE
     Indication: Product used for unknown indication
  2. SECUKINUMAB [Suspect]
     Active Substance: SECUKINUMAB
     Indication: Psoriasis
     Dosage: 1 EVERY 1 MONTHS
     Route: 058
  3. ACITRETIN [Concomitant]
     Active Substance: ACITRETIN
     Indication: Product used for unknown indication
  4. NEORAL [Concomitant]
     Active Substance: CYCLOSPORINE
     Indication: Product used for unknown indication
  5. SORIATANE [Concomitant]
     Active Substance: ACITRETIN
     Indication: Product used for unknown indication
  6. SECUKINUMAB [Suspect]
     Active Substance: SECUKINUMAB
     Indication: Psoriasis
     Dosage: 1 EVERY 1 MONTHS
     Route: 058

REACTIONS (13)
  - Blood cholesterol abnormal [Unknown]
  - Drug ineffective [Unknown]
  - Fatigue [Unknown]
  - Intellectual disability [Unknown]
  - Malaise [Unknown]
  - Myocardial infarction [Unknown]
  - Nephrolithiasis [Unknown]
  - Pain [Unknown]
  - Pain of skin [Unknown]
  - Pruritus [Unknown]
  - Pulmonary mass [Unknown]
  - Renal failure [Unknown]
  - Ulcer [Unknown]
